FAERS Safety Report 4509869-3 (Version None)
Quarter: 2004Q4

REPORT INFORMATION
  Report Type: 
  Country: None (occurrence: None)
  Receive Date: 20041124
  Receipt Date: 20041116
  Transmission Date: 20050328
  Serious: Yes (Other)
  Sender: FDA-Public Use
  Company Number: US-BRISTOL-MYERS SQUIBB COMPANY-12768842

PATIENT
  Sex: Female

DRUGS (1)
  1. SERZONE [Suspect]
     Dates: start: 20000106, end: 20020226

REACTIONS (2)
  - CRYPTOGENIC CIRRHOSIS [None]
  - HEPATIC FAILURE [None]
